FAERS Safety Report 8014707-0 (Version None)
Quarter: 2011Q4

REPORT INFORMATION
  Report Type: 
  Country: None (occurrence: None)
  Receive Date: 20111229
  Receipt Date: 20111222
  Transmission Date: 20120403
  Serious: Yes (Life-Threatening)
  Sender: FDA-Public Use
  Company Number: JP-AMGEN-JPNCT2011051839

PATIENT
  Age: 76 Year
  Sex: Male
  Weight: 56 kg

DRUGS (10)
  1. FAMOTIDINE [Concomitant]
     Route: 048
  2. DECADRON [Concomitant]
     Route: 042
  3. PANITUMUMAB [Suspect]
     Indication: COLORECTAL CANCER METASTATIC
     Dosage: 6 MG/KG, Q2WK
     Route: 041
     Dates: start: 20101110, end: 20101227
  4. ANTIHISTAMINES [Concomitant]
     Indication: PROPHYLAXIS
     Dosage: UNK
     Route: 065
  5. CORTICOSTEROIDS [Concomitant]
     Indication: PROPHYLAXIS
     Dosage: UNK
     Route: 065
  6. POLARAMINE [Concomitant]
     Route: 042
  7. TAMSULOSIN HCL [Concomitant]
     Route: 048
  8. PANITUMUMAB [Suspect]
     Dosage: 6 MG/KG, Q2WK
     Route: 041
     Dates: start: 20110120, end: 20110203
  9. PANITUMUMAB [Suspect]
     Dosage: 6 MG/KG, Q2WK
     Route: 041
     Dates: start: 20110303, end: 20110421
  10. PANITUMUMAB [Suspect]
     Dosage: 6 MG/KG, Q2WK
     Route: 041
     Dates: start: 20110519, end: 20110630

REACTIONS (4)
  - HYPOMAGNESAEMIA [None]
  - DERMATITIS ACNEIFORM [None]
  - DRY SKIN [None]
  - INTERSTITIAL LUNG DISEASE [None]
